FAERS Safety Report 8812040 (Version 3)
Quarter: 2013Q4

REPORT INFORMATION
  Report Type: Spontaneous
  Country: US (occurrence: US)
  Receive Date: 20120927
  Receipt Date: 20131009
  Transmission Date: 20140711
  Serious: Yes (Hospitalization, Other)
  Sender: FDA-Public Use
  Company Number: US-009507513-1209USA009465

PATIENT
  Sex: Female
  Weight: 56.69 kg

DRUGS (5)
  1. FOSAMAX [Suspect]
     Indication: OSTEOPENIA
     Dosage: 10 MG, QD
     Route: 048
     Dates: end: 200703
  2. FOSAMAX [Suspect]
     Dosage: 70 MG, QW
     Route: 048
     Dates: end: 20090513
  3. FOSAMAX [Suspect]
     Indication: OSTEOPENIA
     Dosage: 70 MG, QW
     Route: 048
     Dates: start: 20090513, end: 20101001
  4. ALENDRONATE SODIUM [Suspect]
     Indication: OSTEOPENIA
     Dosage: 70 MG, QW
     Route: 048
     Dates: start: 20090513, end: 20101001
  5. SYNTHROID [Concomitant]
     Indication: HYPOTHYROIDISM
     Dosage: .025-.075 MG QD
     Dates: start: 1986

REACTIONS (40)
  - Intramedullary rod insertion [Unknown]
  - Spinal laminectomy [Not Recovered/Not Resolved]
  - Spinal fusion surgery [Not Recovered/Not Resolved]
  - Femur fracture [Recovered/Resolved]
  - Low turnover osteopathy [Unknown]
  - Adverse event [Unknown]
  - Migraine [Unknown]
  - Lumbar spinal stenosis [Unknown]
  - Urinary incontinence [Unknown]
  - Essential tremor [Unknown]
  - Osteoporosis [Unknown]
  - Hypertension [Unknown]
  - Hysterectomy [Unknown]
  - Night sweats [Unknown]
  - Fatigue [Unknown]
  - Anxiety [Unknown]
  - Head titubation [Unknown]
  - Post laminectomy syndrome [Unknown]
  - Lumbar radiculopathy [Unknown]
  - Scoliosis [Unknown]
  - Intervertebral disc degeneration [Unknown]
  - Goitre [Unknown]
  - Meniere^s disease [Unknown]
  - Blood cholesterol increased [Unknown]
  - Hyponatraemia [Not Recovered/Not Resolved]
  - Chest discomfort [Unknown]
  - Ovarian cyst [Unknown]
  - Spondylolisthesis [Unknown]
  - Tuberculin test positive [Unknown]
  - Arthritis [Unknown]
  - Cardiac murmur [Unknown]
  - Aortic valve incompetence [Unknown]
  - Cardiac valve disease [Unknown]
  - Mitral valve incompetence [Unknown]
  - Mitral valve prolapse [Unknown]
  - Adverse drug reaction [Unknown]
  - Drug ineffective [Unknown]
  - Back pain [Not Recovered/Not Resolved]
  - Nausea [Unknown]
  - Gastrooesophageal reflux disease [Unknown]
